FAERS Safety Report 18647028 (Version 2)
Quarter: 2021Q1

REPORT INFORMATION
  Report Type: Report from Study
  Country: None (occurrence: US)
  Receive Date: 20201221
  Receipt Date: 20210112
  Transmission Date: 20210419
  Serious: Yes (Hospitalization)
  Sender: FDA-Public Use
  Company Number: US-ABBVIE-20K-163-3658472-00

PATIENT
  Age: 70 Year
  Sex: Female

DRUGS (1)
  1. HUMIRA [Suspect]
     Active Substance: ADALIMUMAB
     Indication: CROHN^S DISEASE
     Dosage: CITRATE FREE
     Route: 058
     Dates: start: 20200418

REACTIONS (9)
  - Large intestine infection [Recovered/Resolved]
  - COVID-19 [Unknown]
  - Drug specific antibody present [Unknown]
  - Heart rate abnormal [Recovering/Resolving]
  - Crohn^s disease [Unknown]
  - Viral myocarditis [Recovering/Resolving]
  - Intestinal sepsis [Recovered/Resolved]
  - Drug level abnormal [Unknown]
  - Urinary tract infection [Recovered/Resolved]

NARRATIVE: CASE EVENT DATE: 2020
